FAERS Safety Report 23037890 (Version 1)
Quarter: 2023Q4

REPORT INFORMATION
  Report Type: Report from Study
  Country: US (occurrence: US)
  Receive Date: 20231006
  Receipt Date: 20231006
  Transmission Date: 20240110
  Serious: Yes (Other)
  Sender: FDA-Public Use
  Company Number: US-BAYER-2023A120698

PATIENT
  Age: 68 Year
  Sex: Female

DRUGS (12)
  1. STIVARGA [Suspect]
     Active Substance: REGORAFENIB
     Indication: Small intestine carcinoma
     Dosage: 160 MG, QD (ON DAYS 1-21 OF EACH 28 DAY CYCLE)
     Route: 048
     Dates: start: 20230627
  2. DIPHENOXYLATE [Concomitant]
     Active Substance: DIPHENOXYLATE
     Dosage: 2.5-0.02
  3. ELIQUIS [Concomitant]
     Active Substance: APIXABAN
     Dosage: 5 MG
  4. GABAPENTIN [Concomitant]
     Active Substance: GABAPENTIN
     Dosage: 800 MG
  5. LEVOTHYROXINE [Concomitant]
     Active Substance: LEVOTHYROXINE
     Dosage: 300 MCG
  6. MAGNESIUM [Concomitant]
     Active Substance: MAGNESIUM
     Dosage: 250 MG
  7. METOPROLOL [Concomitant]
     Active Substance: METOPROLOL
     Dosage: 2 200MG
  8. PROCHLORPERAZINE MALEATE [Concomitant]
     Active Substance: PROCHLORPERAZINE MALEATE
     Dosage: 10 MG
  9. SIMVASTATIN [Concomitant]
     Active Substance: SIMVASTATIN
     Dosage: 80 MG
  10. TIZANIDINE [Concomitant]
     Active Substance: TIZANIDINE
     Dosage: 6 MG
  11. VITAMIN B12 [Concomitant]
     Active Substance: CYANOCOBALAMIN
     Dosage: 100 MCG
  12. VITAMIN D2 [Concomitant]
     Active Substance: ERGOCALCIFEROL
     Dosage: 50 MCG

REACTIONS (17)
  - Blood pressure fluctuation [None]
  - Neuropathy peripheral [None]
  - Balance disorder [None]
  - Fatigue [None]
  - Hypertension [None]
  - Decreased appetite [None]
  - Nausea [None]
  - Off label use [None]
  - Asthenia [None]
  - Somnolence [None]
  - Increased appetite [None]
  - Pain [None]
  - Muscle spasms [None]
  - Back pain [None]
  - Dizziness [None]
  - Limb discomfort [Not Recovered/Not Resolved]
  - Skin exfoliation [Not Recovered/Not Resolved]
